FAERS Safety Report 24545628 (Version 3)
Quarter: 2025Q3

REPORT INFORMATION
  Report Type: Spontaneous
  Country: US (occurrence: US)
  Receive Date: 20241024
  Receipt Date: 20250723
  Transmission Date: 20251021
  Serious: No
  Sender: PFIZER
  Company Number: US-PFIZER INC-PV202400137841

PATIENT
  Age: 43 Year
  Sex: Female

DRUGS (14)
  1. CIBINQO [Suspect]
     Active Substance: ABROCITINIB
     Indication: Dermatitis atopic
     Dosage: TAKE 1 TABLET BY MOUTH DAILY
     Route: 048
     Dates: start: 20230216
  2. AMLODIPINE [Concomitant]
     Active Substance: AMLODIPINE BESYLATE
  3. DICLOFENAC [Concomitant]
     Active Substance: DICLOFENAC
  4. DUPIXENT [Concomitant]
     Active Substance: DUPILUMAB
  5. ESTRADIOL [Concomitant]
     Active Substance: ESTRADIOL
  6. FAMOTIDINE [Concomitant]
     Active Substance: FAMOTIDINE
  7. FUROSEMIDE [Concomitant]
     Active Substance: FUROSEMIDE
  8. HALOBETASOL [Concomitant]
     Active Substance: HALOBETASOL
  9. IRON [Concomitant]
     Active Substance: IRON
  10. LEVOTHYROXINE [Concomitant]
     Active Substance: LEVOTHYROXINE
  11. MAGNESIUM [Concomitant]
     Active Substance: MAGNESIUM
  12. VITAMINS [Concomitant]
     Active Substance: VITAMINS
  13. HERBALS\TURMERIC [Concomitant]
     Active Substance: HERBALS\TURMERIC
  14. VITAMIN D NOS [Concomitant]
     Active Substance: CHOLECALCIFEROL\ERGOCALCIFEROL

REACTIONS (3)
  - Sleep disorder [Unknown]
  - Palpitations [Unknown]
  - Hepatic enzyme increased [Unknown]

NARRATIVE: CASE EVENT DATE: 20240901
